FAERS Safety Report 7279609-6 (Version None)
Quarter: 2011Q1

REPORT INFORMATION
  Report Type: 
  Country: None (occurrence: None)
  Receive Date: 20110203
  Receipt Date: 20110203
  Transmission Date: 20110831
  Serious: No
  Sender: FDA-Public Use
  Company Number: None

PATIENT
  Age: 61 Year

DRUGS (1)
  1. RECLAST [Suspect]

REACTIONS (19)
  - FATIGUE [None]
  - WEIGHT INCREASED [None]
  - DYSPEPSIA [None]
  - ABDOMINAL PAIN UPPER [None]
  - ANXIETY [None]
  - ORAL HERPES [None]
  - ALOPECIA [None]
  - HOT FLUSH [None]
  - DEPRESSION [None]
  - ABDOMINAL DISTENSION [None]
  - SCAR [None]
  - OVERDOSE [None]
  - ASTHENIA [None]
  - FURUNCLE [None]
  - TOXICITY TO VARIOUS AGENTS [None]
  - NAUSEA [None]
  - DIARRHOEA [None]
  - MELAENA [None]
  - DYSGEUSIA [None]
